FAERS Safety Report 8923636 (Version 1)
Quarter: 2012Q4

REPORT INFORMATION
  Report Type: Spontaneous
  Country: US (occurrence: None)
  Receive Date: 20121109
  Receipt Date: 20121109
  Transmission Date: 20130627
  Serious: Yes (Hospitalization)
  Sender: FDA-Public Use
  Company Number: 2012S1000570

PATIENT
  Age: 67 Year
  Sex: Female
  Weight: 83.9 kg

DRUGS (8)
  1. CUBICIN [Suspect]
     Indication: STAPHYLOCOCCAL INFECTION
     Dosage: 500 MG; QD ; IV
     Route: 042
     Dates: start: 20120601, end: 20120629
  2. LEVOTHYROXINE [Concomitant]
  3. HYDROCODONE [Concomitant]
  4. TYLENOL [Concomitant]
  5. LANSOPRAZOLE [Concomitant]
  6. DOCUSATE SODIUM [Concomitant]
  7. PREVACID [Concomitant]
  8. LEVOTHYROXINE [Concomitant]

REACTIONS (1)
  - Eosinophilic pneumonia [None]
